FAERS Safety Report 15240666 (Version 3)
Quarter: 2018Q4

REPORT INFORMATION
  Report Type: Report from Study
  Country: US (occurrence: US)
  Receive Date: 20180804
  Receipt Date: 20181126
  Transmission Date: 20190204
  Serious: No
  Sender: FDA-Public Use
  Company Number: PHEH2018US032346

PATIENT
  Sex: Female
  Weight: 127.4 kg

DRUGS (1)
  1. PENICILLIN G SODIUM. [Suspect]
     Active Substance: PENICILLIN G SODIUM
     Indication: PRODUCT USED FOR UNKNOWN INDICATION
     Route: 065

REACTIONS (1)
  - Drug hypersensitivity [Unknown]
